FAERS Safety Report 14391745 (Version 1)
Quarter: 2018Q1

REPORT INFORMATION
  Report Type: Spontaneous
  Country: US (occurrence: US)
  Receive Date: 20180112
  Receipt Date: 20180112
  Transmission Date: 20180509
  Serious: Yes (Other)
  Sender: FDA-Public Use
  Company Number: None

PATIENT
  Age: 74 Year
  Sex: Male

DRUGS (7)
  1. DIGOXIN. [Concomitant]
     Active Substance: DIGOXIN
  2. WARFARIN [Concomitant]
     Active Substance: WARFARIN
  3. LASIX [Concomitant]
     Active Substance: FUROSEMIDE
  4. SILDENAFIL. [Concomitant]
     Active Substance: SILDENAFIL
  5. LETAIRIS [Suspect]
     Active Substance: AMBRISENTAN
     Indication: SCLERODERMA
     Route: 048
     Dates: start: 20170224
  6. TYVASO [Concomitant]
     Active Substance: TREPROSTINIL
  7. PROSCAR [Concomitant]
     Active Substance: FINASTERIDE

REACTIONS (2)
  - Chest pain [None]
  - Drug dose omission [None]

NARRATIVE: CASE EVENT DATE: 20180107
